FAERS Safety Report 10121111 (Version 1)
Quarter: 2014Q2

REPORT INFORMATION
  Report Type: Spontaneous
  Country: US (occurrence: US)
  Receive Date: 20140425
  Receipt Date: 20140425
  Transmission Date: 20141212
  Serious: No
  Sender: FDA-Public Use
  Company Number: US-ASTRAZENECA-2013SE88741

PATIENT
  Age: 94 Year
  Sex: Female

DRUGS (5)
  1. PRILOSEC OTC [Suspect]
     Route: 048
     Dates: start: 20131127, end: 20131128
  2. BENICAR [Concomitant]
     Dosage: 40 MG, 1 /DAY
     Route: 048
  3. NORVASC [Concomitant]
     Dosage: 2.5 MG, AS NEEDED
     Route: 048
  4. ATIVAN [Concomitant]
     Dosage: 1 MG, 1 /DAY
     Route: 048
  5. NEURONTIN [Concomitant]
     Dosage: 300 MG, 1 /DAY
     Route: 048

REACTIONS (5)
  - Gait disturbance [Recovered/Resolved]
  - Dysuria [Recovered/Resolved]
  - Feeling drunk [Recovered/Resolved]
  - Dizziness [Recovered/Resolved]
  - Insomnia [Recovered/Resolved]
